FAERS Safety Report 5690042-0 (Version None)
Quarter: 2008Q2

REPORT INFORMATION
  Report Type: 
  Country: None (occurrence: None)
  Receive Date: 20080401
  Receipt Date: 20080218
  Transmission Date: 20081010
  Serious: No
  Sender: FDA-Public Use
  Company Number: US-BAYER-200815315NA

PATIENT
  Age: 39 Year
  Sex: Female
  Weight: 68 kg

DRUGS (2)
  1. MAGNEVIST SINGLE USE 20ML [Suspect]
     Indication: NUCLEAR MAGNETIC RESONANCE IMAGING
     Route: 042
     Dates: start: 20080218, end: 20080218
  2. BENZPHETAMINE [Concomitant]

REACTIONS (3)
  - NASAL CONGESTION [None]
  - PRURITUS [None]
  - URTICARIA [None]
